FAERS Safety Report 6409127-6 (Version None)
Quarter: 2009Q4

REPORT INFORMATION
  Report Type: 
  Country: None (occurrence: None)
  Receive Date: 20091021
  Receipt Date: 20091008
  Transmission Date: 20100525
  Serious: Yes (Other)
  Sender: FDA-Public Use
  Company Number: PHEH2007US07590

PATIENT
  Sex: Female

DRUGS (4)
  1. AREDIA [Suspect]
     Indication: OSTEOPOROSIS
     Dosage: 30 MG, QW3
     Route: 042
     Dates: start: 20000101, end: 20050701
  2. REMICADE [Concomitant]
     Dosage: UNK, UNK
  3. CHEMOTHERAPEUTICS NOS [Concomitant]
  4. METHOTREXATE [Concomitant]

REACTIONS (74)
  - ACTIVITIES OF DAILY LIVING IMPAIRED [None]
  - ANAEMIA [None]
  - ANHEDONIA [None]
  - ANXIETY [None]
  - APHASIA [None]
  - ARTHRALGIA [None]
  - BACK PAIN [None]
  - BALANCE DISORDER [None]
  - BLOOD ANTIDIURETIC HORMONE DECREASED [None]
  - BRAIN NEOPLASM [None]
  - CENTRAL VENOUS CATHETERISATION [None]
  - CONVULSION [None]
  - CUSHINGOID [None]
  - DIARRHOEA [None]
  - DYSARTHRIA [None]
  - EMOTIONAL DISTRESS [None]
  - ENDODONTIC PROCEDURE [None]
  - FACIAL PALSY [None]
  - FALL [None]
  - FATIGUE [None]
  - FOOT FRACTURE [None]
  - GINGIVAL DISORDER [None]
  - HAEMORRHAGE [None]
  - HEADACHE [None]
  - HYPOAESTHESIA [None]
  - HYPOAESTHESIA FACIAL [None]
  - HYPOKALAEMIA [None]
  - HYPOKINESIA [None]
  - HYPOPHAGIA [None]
  - IMPAIRED HEALING [None]
  - INFLUENZA [None]
  - INSOMNIA [None]
  - JAW DISORDER [None]
  - JOINT SPRAIN [None]
  - JOINT SWELLING [None]
  - JUDGEMENT IMPAIRED [None]
  - LARGE INTESTINAL ULCER [None]
  - LIFE EXPECTANCY SHORTENED [None]
  - MEMORY IMPAIRMENT [None]
  - MIDDLE INSOMNIA [None]
  - MIXED CONNECTIVE TISSUE DISEASE [None]
  - MOUTH ULCERATION [None]
  - MUCOSAL ULCERATION [None]
  - MUSCLE ATROPHY [None]
  - MUSCULOSKELETAL CHEST PAIN [None]
  - MYALGIA [None]
  - NERVOUS SYSTEM DISORDER [None]
  - NEUROPATHY PERIPHERAL [None]
  - OEDEMA PERIPHERAL [None]
  - OSTEOARTHRITIS [None]
  - OSTEONECROSIS [None]
  - OSTEOPENIA [None]
  - OVARIAN DISORDER [None]
  - PAIN [None]
  - PAIN IN JAW [None]
  - PERIODONTITIS [None]
  - PITUITARY TUMOUR BENIGN [None]
  - PNEUMONIA ASPIRATION [None]
  - PYREXIA [None]
  - RENAL FAILURE [None]
  - SALIVA ALTERED [None]
  - SJOGREN'S SYNDROME [None]
  - SKIN HYPERPIGMENTATION [None]
  - SPINAL OSTEOARTHRITIS [None]
  - TOOTH DISORDER [None]
  - TOOTH EXTRACTION [None]
  - TOOTH FRACTURE [None]
  - TOOTH LOSS [None]
  - TRANSFUSION [None]
  - URINARY TRACT INFECTION [None]
  - VAGINAL ULCERATION [None]
  - VASCULITIS [None]
  - VISUAL IMPAIRMENT [None]
  - WRIST FRACTURE [None]
